FAERS Safety Report 20697115 (Version 2)
Quarter: 2022Q4

REPORT INFORMATION
  Report Type: Spontaneous
  Country: US (occurrence: US)
  Receive Date: 20220411
  Receipt Date: 20221205
  Transmission Date: 20230112
  Serious: No
  Sender: FDA-Public Use
  Company Number: US-PFIZER INC-202200383845

PATIENT
  Age: 6 Year
  Sex: Female

DRUGS (1)
  1. EUCRISA [Suspect]
     Active Substance: CRISABOROLE
     Indication: Dermatitis atopic
     Dosage: APPLY TO AFFECTED AREA ON ARMS, ABDOMEN BID PRN
     Route: 061

REACTIONS (1)
  - Skin disorder [Unknown]
